FAERS Safety Report 14199769 (Version 1)
Quarter: 2017Q4

REPORT INFORMATION
  Report Type: Report from Study
  Country: US (occurrence: US)
  Receive Date: 20171117
  Receipt Date: 20171117
  Transmission Date: 20180321
  Serious: Yes (Other)
  Sender: FDA-Public Use
  Company Number: US-ALEXION PHARMACEUTICALS INC.-A201712575

PATIENT
  Sex: Male

DRUGS (1)
  1. SOLIRIS [Suspect]
     Active Substance: ECULIZUMAB
     Indication: PAROXYSMAL NOCTURNAL HAEMOGLOBINURIA
     Dosage: 900 MG, QW
     Route: 042
     Dates: start: 20171006, end: 20171102

REACTIONS (4)
  - Haemoglobin abnormal [Unknown]
  - Haptoglobin decreased [Unknown]
  - Haemoglobinuria [Unknown]
  - Laboratory test abnormal [Unknown]
